FAERS Safety Report 14654633 (Version 2)
Quarter: 2018Q2

REPORT INFORMATION
  Report Type: Spontaneous
  Country: US (occurrence: US)
  Receive Date: 20180319
  Receipt Date: 20180508
  Transmission Date: 20180711
  Serious: No
  Sender: FDA-Public Use
  Company Number: US-CELLTRION INC.-2017US015757

PATIENT

DRUGS (2)
  1. INFLECTRA [Suspect]
     Active Substance: INFLIXIMAB-DYYB
     Indication: PANNICULITIS
     Dosage: 3 MG/KG, AT 0, 2, 6 AND THEN EVERY 8 WEEKS
     Route: 065
  2. INFLECTRA [Suspect]
     Active Substance: INFLIXIMAB-DYYB
     Indication: ANKYLOSING SPONDYLITIS
     Dosage: 3 VIALS, AT 0, 2, 6 AND THEN EVERY 8 WEEKS
     Route: 065

REACTIONS (2)
  - Drug prescribing error [Unknown]
  - Off label use [Unknown]
